FAERS Safety Report 4478301-0 (Version None)
Quarter: 2004Q4

REPORT INFORMATION
  Report Type: 
  Country: None (occurrence: None)
  Receive Date: 20041013
  Receipt Date: 20040929
  Transmission Date: 20050328
  Serious: Yes (Disabling)
  Sender: FDA-Public Use
  Company Number: JP_040904529

PATIENT
  Age: 76 Year
  Sex: Female

DRUGS (10)
  1. EVISTA [Suspect]
     Indication: OSTEOPOROSIS POSTMENOPAUSAL
     Dosage: 60 MG DAY
     Dates: start: 20040716, end: 20040901
  2. CALCITRIOL [Concomitant]
  3. ROCALTROL [Concomitant]
  4. KALLIDINOGENASE [Concomitant]
  5. NITRENDIPINE [Concomitant]
  6. EPADEL (ETHYL ICOSAPENTATE) [Concomitant]
  7. NIZATIDINE [Concomitant]
  8. DIOVAN ^CIBA-GEIGY^ (VALSARTAN) [Concomitant]
  9. YODEL (SENNA ALEXANDRINA) [Concomitant]
  10. RIZE (CLOTIAZEPAM) [Concomitant]

REACTIONS (2)
  - DIZZINESS [None]
  - HYPOAESTHESIA [None]
